FAERS Safety Report 4636853-1 (Version None)
Quarter: 2005Q2

REPORT INFORMATION
  Report Type: 
  Country: None (occurrence: None)
  Receive Date: 20050414
  Receipt Date: 20050405
  Transmission Date: 20051028
  Serious: Yes (Disabling)
  Sender: FDA-Public Use
  Company Number: HQWYE884708MAR05

PATIENT
  Age: 70 Year
  Sex: Female
  Weight: 68.1 kg

DRUGS (3)
  1. CORDARONE [Suspect]
     Indication: VENTRICULAR TACHYCARDIA
     Dosage: ORAL
     Route: 048
     Dates: start: 20041123, end: 20041229
  2. UNSPECIFIED THYROID MEDICATION (UNSPECIFIED THYROID MEDICATION, UNSPEC [Suspect]
     Indication: THYROID DISORDER
     Dosage: UNSPECIFIED DAILY DOSE,
  3. VALPROIC ACID [Suspect]
     Indication: CONVULSION
     Dosage: TAPPERING OFF, CURRENTLY 250 MG,

REACTIONS (4)
  - GAIT DISTURBANCE [None]
  - PERIPHERAL COLDNESS [None]
  - SPEECH DISORDER [None]
  - TREMOR [None]
